FAERS Safety Report 16255468 (Version 1)
Quarter: 2019Q2

REPORT INFORMATION
  Report Type: Spontaneous
  Country: US (occurrence: US)
  Receive Date: 20190430
  Receipt Date: 20190430
  Transmission Date: 20190711
  Serious: No
  Sender: FDA-Public Use
  Company Number: US-TEVA-2019-US-1043492

PATIENT
  Sex: Female

DRUGS (1)
  1. COPAXONE [Suspect]
     Active Substance: GLATIRAMER ACETATE
     Route: 065

REACTIONS (5)
  - Chest discomfort [Recovered/Resolved]
  - Vomiting projectile [Unknown]
  - Lipoatrophy [Unknown]
  - Papule [Recovered/Resolved]
  - Flushing [Recovered/Resolved]
